FAERS Safety Report 18230092 (Version 2)
Quarter: 2020Q3

REPORT INFORMATION
  Report Type: Report from Study
  Country: US (occurrence: US)
  Receive Date: 20200903
  Receipt Date: 20200914
  Transmission Date: 20201103
  Serious: Yes (Hospitalization)
  Sender: FDA-Public Use
  Company Number: US-EXELIXIS-CABO-20032161

PATIENT
  Sex: Male

DRUGS (3)
  1. CABOMETYX [Suspect]
     Active Substance: CABOZANTINIB S-MALATE
     Indication: OESOPHAGEAL CARCINOMA
     Dosage: 60 MG
     Dates: start: 20200727
  2. MAGNESIUM [Concomitant]
     Active Substance: MAGNESIUM
  3. KEYTRUDA [Suspect]
     Active Substance: PEMBROLIZUMAB
     Indication: OESOPHAGEAL CARCINOMA
     Dosage: UNK

REACTIONS (5)
  - Vomiting [Unknown]
  - Nausea [Unknown]
  - Fatigue [Unknown]
  - Palmar-plantar erythrodysaesthesia syndrome [Unknown]
  - Off label use [Unknown]
